FAERS Safety Report 5380201-9 (Version None)
Quarter: 2007Q3

REPORT INFORMATION
  Report Type: 
  Country: None (occurrence: None)
  Receive Date: 20070706
  Receipt Date: 20070629
  Transmission Date: 20080115
  Serious: Yes (Hospitalization)
  Sender: FDA-Public Use
  Company Number: US-AMGEN-US211238

PATIENT
  Sex: Female

DRUGS (10)
  1. PANITUMUMAB [Suspect]
     Indication: COLORECTAL CANCER
     Route: 042
     Dates: start: 20060725, end: 20060725
  2. PANITUMUMAB [Suspect]
     Route: 042
     Dates: start: 20060927, end: 20060927
  3. AVASTIN [Suspect]
     Route: 042
  4. FLUOROURACIL [Suspect]
     Route: 042
  5. LEUCOVORIN CALCIUM [Suspect]
     Route: 042
  6. IRINOTECAN HCL [Suspect]
     Route: 042
  7. LASIX [Concomitant]
     Route: 048
  8. SYNTHROID [Concomitant]
     Route: 048
  9. MULTIVITAMIN [Concomitant]
     Route: 048
  10. COUMADIN [Concomitant]
     Route: 048

REACTIONS (3)
  - INFLAMMATION [None]
  - PAIN [None]
  - URINARY TRACT INFECTION [None]
